FAERS Safety Report 4274198-2 (Version None)
Quarter: 2004Q1

REPORT INFORMATION
  Report Type: 
  Country: None (occurrence: None)
  Receive Date: 20040115
  Receipt Date: 20040106
  Transmission Date: 20041129
  Serious: Yes (Hospitalization)
  Sender: FDA-Public Use
  Company Number: 2004-00042

PATIENT
  Age: 72 Year
  Sex: Female
  Weight: 68 kg

DRUGS (6)
  1. NICOTINE [Suspect]
     Indication: EX-SMOKER
     Dosage: 1 PIECE, Q2H, BUCCAL
     Route: 002
     Dates: start: 20031228
  2. KINERET [Concomitant]
  3. HYPERTENSION MEDICATION [Concomitant]
  4. CHOLESTEROL MEDICATION [Concomitant]
  5. EMPHYSEMA INHALERS [Concomitant]
  6. GLUCOTROL [Concomitant]

REACTIONS (2)
  - BLOOD GLUCOSE INCREASED [None]
  - DYSPNOEA EXACERBATED [None]
